FAERS Safety Report 7434837-1 (Version None)
Quarter: 2011Q2

REPORT INFORMATION
  Report Type: 
  Country: None (occurrence: None)
  Receive Date: 20110415
  Receipt Date: 20110408
  Transmission Date: 20111010
  Serious: Yes (Hospitalization)
  Sender: FDA-Public Use
  Company Number: JP-2011-10095

PATIENT
  Age: 83 Year
  Sex: Male

DRUGS (6)
  1. ACTOS [Concomitant]
  2. ASPIRIN [Concomitant]
  3. PLETAL [Suspect]
     Indication: CEREBRAL INFARCTION
     Dosage: 100 MG MILLIGRAM(S), BID, ORAL
     Route: 048
     Dates: start: 20101220, end: 20110117
  4. ALLOPURINOL [Concomitant]
  5. AMARYL [Concomitant]
  6. DIOVAN [Concomitant]

REACTIONS (1)
  - TREMOR [None]
